FAERS Safety Report 5091107-7 (Version None)
Quarter: 2006Q3

REPORT INFORMATION
  Report Type: 
  Country: None (occurrence: None)
  Receive Date: 20060727
  Receipt Date: 20060330
  Transmission Date: 20061208
  Serious: Yes (Other)
  Sender: FDA-Public Use
  Company Number: 2006045084

PATIENT
  Sex: Female
  Weight: 60.782 kg

DRUGS (5)
  1. LYRICA [Suspect]
     Indication: NEURALGIA
     Dosage: 150 MG (75 MG,2 IN 1 D)
     Dates: start: 20060201
  2. LORTAB [Concomitant]
  3. ZOLOFT [Concomitant]
  4. AMITRIPTYLINE HCL [Concomitant]
  5. TIZANIDINE HCL [Concomitant]

REACTIONS (2)
  - DEHYDRATION [None]
  - DYSPHONIA [None]
